FAERS Safety Report 10003960 (Version 1)
Quarter: 2014Q1

REPORT INFORMATION
  Report Type: Report from Study
  Country: IT (occurrence: IT)
  Receive Date: 20140312
  Receipt Date: 20140312
  Transmission Date: 20141002
  Serious: Yes (Death, Life-Threatening, Hospitalization)
  Sender: FDA-Public Use
  Company Number: IT-BRISTOL-MYERS SQUIBB COMPANY-20386066

PATIENT
  Age: 45 Year
  Sex: Female

DRUGS (8)
  1. PACLITAXEL [Suspect]
     Indication: OVARIAN EPITHELIAL CANCER
     Dosage: LAST DOSE:24DEC2013
     Route: 042
     Dates: start: 20131217
  2. BLINDED: PERTUZUMAB [Suspect]
     Indication: OVARIAN EPITHELIAL CANCER
     Dosage: LOT:RNUU70057;LOADING DOSE:CYCLE 1
     Route: 042
     Dates: start: 20131217
  3. BLINDED: PLACEBO [Suspect]
     Indication: OVARIAN EPITHELIAL CANCER
  4. FENTANYL CITRATE [Concomitant]
     Dates: start: 20131203, end: 20140107
  5. OMEPRAZOLE [Concomitant]
     Dates: start: 20130902, end: 20140107
  6. METOCLOPRAMIDE [Concomitant]
     Dates: start: 20131217, end: 20140107
  7. MACROGOL [Concomitant]
     Dates: start: 20131225, end: 20140107
  8. SPIRONOLACTONE [Concomitant]
     Dates: start: 20131225, end: 20140107

REACTIONS (3)
  - Gastrointestinal obstruction [Fatal]
  - Anaemia [Unknown]
  - General physical health deterioration [Unknown]
